FAERS Safety Report 15150103 (Version 4)
Quarter: 2019Q2

REPORT INFORMATION
  Report Type: Report from Study
  Country: MY (occurrence: MY)
  Receive Date: 20180716
  Receipt Date: 20190625
  Transmission Date: 20190711
  Serious: Yes (Other)
  Sender: FDA-Public Use
  Company Number: MY-ALLERGAN-1834699US

PATIENT
  Sex: Female
  Weight: 51 kg

DRUGS (2)
  1. BIMATOPROST. [Suspect]
     Active Substance: BIMATOPROST
     Indication: OPEN ANGLE GLAUCOMA
     Dosage: 10 ?G, SINGLE
     Route: 031
     Dates: start: 20180522, end: 20180522
  2. BIMATOPROST. [Suspect]
     Active Substance: BIMATOPROST
     Dosage: 10 ?G, SINGLE
     Route: 031
     Dates: start: 20180130, end: 20180130

REACTIONS (2)
  - Visual impairment [Recovered/Resolved]
  - Corneal decompensation [Recovering/Resolving]

NARRATIVE: CASE EVENT DATE: 20180706
